FAERS Safety Report 8663836 (Version 3)
Quarter: 2012Q4

REPORT INFORMATION
  Report Type: 
  Country: US (occurrence: US)
  Receive Date: 20120713
  Receipt Date: 20120917
  Transmission Date: 20130627
  Serious: Yes (Disabling, Other)
  Sender: FDA-Public Use
  Company Number: US-PFIZER INC-2012164361

PATIENT
  Age: 78 Year
  Sex: Female
  Weight: 58.05 kg

DRUGS (12)
  1. LYRICA [Suspect]
     Indication: NEURALGIA
     Dosage: 100 mg, 3x/day
     Route: 048
     Dates: start: 20060418
  2. LYRICA [Suspect]
     Indication: NEUROPATHY PERIPHERAL
     Dosage: 100 mg, 2x/day
     Route: 048
  3. LYRICA [Suspect]
     Dosage: 100 mg, 3x/day
     Route: 048
  4. FOSAMAX [Concomitant]
     Indication: OSTEOPOROSIS
     Dosage: ^80 mg^, Weekly
     Dates: start: 1992
  5. BENICAR [Concomitant]
     Dosage: 40 mg, Daily
     Route: 048
  6. AMLODIPINE [Concomitant]
     Dosage: UNK
  7. ISOSORBIDE [Concomitant]
     Dosage: UNK
  8. FUROSEMIDE [Concomitant]
     Dosage: UNK
  9. LOVASTATIN [Concomitant]
     Dosage: UNK
  10. METOPROLOL [Concomitant]
     Dosage: UNK
  11. MELOXICAM [Concomitant]
     Dosage: UNK
  12. CLOPIDOGREL BISULFATE [Concomitant]
     Dosage: UNK

REACTIONS (3)
  - Blindness [Unknown]
  - Vision blurred [Unknown]
  - Drug administration error [Unknown]
